FAERS Safety Report 7953612-2 (Version None)
Quarter: 2011Q4

REPORT INFORMATION
  Report Type: 
  Country: None (occurrence: None)
  Receive Date: 20111129
  Receipt Date: 20111124
  Transmission Date: 20120403
  Serious: Yes (Death, Other)
  Sender: FDA-Public Use
  Company Number: AUR-APL-2010-02456

PATIENT
  Age: 49 Year
  Sex: Female

DRUGS (7)
  1. AMISULPRIDE (AMISULPRIDE, AMISULPRIDE) [Suspect]
     Indication: SCHIZOPHRENIA
     Dosage: (200 MG),ORAL ; ORAL
     Route: 048
     Dates: end: 20100801
  2. TEMAZEPAM [Concomitant]
  3. LAMOTRIGINE [Suspect]
     Indication: CONVULSION
     Dosage: (50 MG)
     Dates: end: 20100801
  4. RAMIPRIL [Concomitant]
  5. CLOZARIL [Suspect]
     Indication: SCHIZOPHRENIA
     Dosage: (600 MG,1 IN 1 D,ORAL) ; (600 MG,1 IN 1 D),ORAL
     Route: 048
     Dates: start: 20050207
  6. CLOZARIL [Suspect]
     Indication: SCHIZOPHRENIA
     Dosage: (600 MG,1 IN 1 D,ORAL) ; (600 MG,1 IN 1 D),ORAL
     Route: 048
     Dates: start: 20050207
  7. PAROXETINE (PAROXETINE) (PAROXETINE) [Concomitant]

REACTIONS (2)
  - PLATELET COUNT DECREASED [None]
  - HAEMOGLOBIN DECREASED [None]
